FAERS Safety Report 12685399 (Version 1)
Quarter: 2016Q3

REPORT INFORMATION
  Report Type: Spontaneous
  Country: US (occurrence: US)
  Receive Date: 20160825
  Receipt Date: 20160825
  Transmission Date: 20161109
  Serious: No
  Sender: FDA-Public Use
  Company Number: US-009507513-1608USA005315

PATIENT
  Sex: Female
  Weight: 77.1 kg

DRUGS (1)
  1. NEXPLANON [Suspect]
     Active Substance: ETONOGESTREL
     Dosage: THREE YEAR IMPLANT
     Route: 059
     Dates: start: 201507

REACTIONS (2)
  - Device breakage [Recovered/Resolved]
  - No adverse event [Unknown]
